FAERS Safety Report 25219237 (Version 1)
Quarter: 2025Q2

REPORT INFORMATION
  Report Type: Spontaneous
  Country: RU (occurrence: RU)
  Receive Date: 20250421
  Receipt Date: 20250421
  Transmission Date: 20250716
  Serious: Yes (Life-Threatening, Hospitalization, Other)
  Sender: BAYER HEALTHCARE PHARMACEUTICALS INC.
  Company Number: RU-BAYER-2025A049993

PATIENT
  Age: 49 Year
  Sex: Female
  Weight: 82 kg

DRUGS (2)
  1. DIENOGEST\ESTRADIOL VALERATE [Suspect]
     Active Substance: DIENOGEST\ESTRADIOL VALERATE
     Indication: Endometriosis
     Dosage: 1 TABLET (2 MG + 2 MG) - 1 TIME A DAY
     Route: 048
     Dates: start: 2020, end: 20250328
  2. LISINOPRIL [Concomitant]
     Active Substance: LISINOPRIL
     Indication: Hypertensive heart disease
     Route: 048
     Dates: end: 20250328

REACTIONS (8)
  - Pulmonary embolism [Recovering/Resolving]
  - Peripheral vein thrombosis [Recovering/Resolving]
  - Lower limb fracture [None]
  - Fracture displacement [None]
  - Deep vein thrombosis [None]
  - Hypertension [None]
  - Product use in unapproved indication [None]
  - Accident at home [None]

NARRATIVE: CASE EVENT DATE: 20250307
